FAERS Safety Report 9924004 (Version 2)
Quarter: 2014Q1

REPORT INFORMATION
  Report Type: Spontaneous
  Country: JP (occurrence: JP)
  Receive Date: 20140225
  Receipt Date: 20140225
  Transmission Date: 20141002
  Serious: Yes (Hospitalization, Other)
  Sender: FDA-Public Use
  Company Number: JP-B.I. PHARMACEUTICALS,INC./RIDGEFIELD-2014-BI-02902NB

PATIENT
  Age: 80 Year
  Sex: Male
  Weight: 48.8 kg

DRUGS (1)
  1. PRAZAXA [Suspect]
     Indication: ATRIAL FIBRILLATION
     Dosage: 150 MG
     Route: 048
     Dates: end: 20140105

REACTIONS (2)
  - Intraventricular haemorrhage [Not Recovered/Not Resolved]
  - Cerebrovascular arteriovenous malformation [Unknown]
